FAERS Safety Report 6839252-7 (Version None)
Quarter: 2010Q3

REPORT INFORMATION
  Report Type: 
  Country: None (occurrence: None)
  Receive Date: 20100714
  Receipt Date: 20100705
  Transmission Date: 20110219
  Serious: Yes (Hospitalization)
  Sender: FDA-Public Use
  Company Number: FI-ASTRAZENECA-2009SE02309

PATIENT
  Age: 9118 Day
  Sex: Female

DRUGS (4)
  1. SEROQUEL [Suspect]
     Route: 048
  2. SEROQUEL [Suspect]
     Route: 048
  3. ZYPREXA [Concomitant]
  4. NITROFUR-C [Concomitant]
     Dosage: COURSES AS NEEDED

REACTIONS (4)
  - DRUG EXPOSURE DURING PREGNANCY [None]
  - POSTPARTUM HAEMORRHAGE [None]
  - PYREXIA [None]
  - RETAINED PLACENTA OR MEMBRANES [None]
